FAERS Safety Report 5906844-9 (Version None)
Quarter: 2008Q3

REPORT INFORMATION
  Report Type: 
  Country: None (occurrence: None)
  Receive Date: 20080929
  Receipt Date: 20080918
  Transmission Date: 20090109
  Serious: Yes (Hospitalization)
  Sender: FDA-Public Use
  Company Number: 2008US002445

PATIENT
  Age: 52 Year
  Sex: Male

DRUGS (1)
  1. PROGRAF [Suspect]
     Indication: RENAL TRANSPLANT
     Dosage: 0.05 MG/KG, BID, ORAL
     Route: 048
     Dates: start: 20070614

REACTIONS (1)
  - URETHRAL OBSTRUCTION [None]
